FAERS Safety Report 12413877 (Version 1)
Quarter: 2016Q2

REPORT INFORMATION
  Report Type: Not Available
  Country: FR (occurrence: FR)
  Receive Date: 20160527
  Receipt Date: 20160527
  Transmission Date: 20160815
  Serious: Yes (Life-Threatening, Hospitalization)
  Sender: FDA-Public Use
  Company Number: FR-ANIPHARMA-2016-FR-000012

PATIENT
  Age: 70 Year
  Sex: Female

DRUGS (1)
  1. FLECAINIDE ACETATE (NON-SPECIFIC) [Suspect]
     Active Substance: FLECAINIDE ACETATE
     Dosage: 3 GRAMS ONCE
     Route: 048

REACTIONS (6)
  - Cardiogenic shock [Unknown]
  - Post-anoxic myoclonus [Unknown]
  - Intentional overdose [Unknown]
  - Parkinsonism [Unknown]
  - Suicide attempt [Unknown]
  - Basal ganglia infarction [Unknown]
